FAERS Safety Report 5765360-8 (Version None)
Quarter: 2008Q2

REPORT INFORMATION
  Report Type: 
  Country: None (occurrence: None)
  Receive Date: 20080609
  Receipt Date: 20080609
  Transmission Date: 20081010
  Serious: Yes (Hospitalization)
  Sender: FDA-Public Use
  Company Number: None

PATIENT
  Sex: Female
  Weight: 61.6892 kg

DRUGS (1)
  1. OPTIRAY 350 [Suspect]
     Indication: ABDOMINAL DISCOMFORT
     Dosage: 100ML ONCE IV
     Route: 042
     Dates: start: 20080517, end: 20080517

REACTIONS (2)
  - DYSPNOEA [None]
  - PULMONARY CONGESTION [None]
